FAERS Safety Report 4875941-1 (Version None)
Quarter: 2005Q4

REPORT INFORMATION
  Report Type: 
  Country: None (occurrence: None)
  Receive Date: 20051205
  Receipt Date: 20051011
  Transmission Date: 20060501
  Serious: No
  Sender: FDA-Public Use
  Company Number: USA0510110486

PATIENT
  Age: 45 Year
  Sex: Female

DRUGS (3)
  1. ALIMTA [Suspect]
     Indication: LUNG CANCER METASTATIC
     Dates: start: 20050101
  2. TARCEVA [Concomitant]
  3. VITAMIN B-12 [Concomitant]

REACTIONS (4)
  - MOUTH HAEMORRHAGE [None]
  - PERIORBITAL OEDEMA [None]
  - STOMATITIS [None]
  - VISUAL DISTURBANCE [None]
